FAERS Safety Report 11050017 (Version 2)
Quarter: 2015Q3

REPORT INFORMATION
  Report Type: Spontaneous
  Country: FR (occurrence: FR)
  Receive Date: 20150420
  Receipt Date: 20150921
  Transmission Date: 20151125
  Serious: Yes (Other)
  Sender: FDA-Public Use
  Company Number: ALCN2014FR007260

PATIENT
  Age: 38 Year
  Sex: Female
  Weight: 58 kg

DRUGS (6)
  1. RIFAMYCIN [Suspect]
     Active Substance: RIFAMYCIN
     Indication: CONJUNCTIVITIS
     Dosage: 1 DF, QID
     Route: 047
     Dates: start: 20141230, end: 20150104
  2. DIPROSONE [Suspect]
     Active Substance: BETAMETHASONE DIPROPIONATE
     Indication: ECZEMA
     Dosage: UNK
     Route: 061
     Dates: start: 20150120, end: 20150127
  3. UVEDOSE [Suspect]
     Active Substance: CHOLECALCIFEROL
     Indication: PROPHYLAXIS
     Dosage: 1 DF, ONCE/SINGLE
     Route: 048
     Dates: start: 201502
  4. TARDYFERON B(9) [Suspect]
     Active Substance: FERROUS SULFATE\FOLIC ACID
     Indication: PRODUCT USED FOR UNKNOWN INDICATION
     Dosage: 1 DF, BID
     Route: 048
     Dates: start: 20150224, end: 20150324
  5. TOBREX [Suspect]
     Active Substance: TOBRAMYCIN
     Indication: PRODUCT USED FOR UNKNOWN INDICATION
     Dosage: 1 GTT, TID
     Route: 047
     Dates: start: 20141228, end: 20141229
  6. ACIDO FOLICO//FOLIC ACID [Suspect]
     Active Substance: FOLIC ACID
     Indication: PROPHYLAXIS
     Dosage: 1 DF, QD
     Route: 048
     Dates: start: 20140827, end: 20141115

REACTIONS (1)
  - Cytomegalovirus test positive [Unknown]

NARRATIVE: CASE EVENT DATE: 20150124
